FAERS Safety Report 24383992 (Version 1)
Quarter: 2024Q4

REPORT INFORMATION
  Report Type: Report from Study
  Country: ZA (occurrence: ZA)
  Receive Date: 20241001
  Receipt Date: 20241001
  Transmission Date: 20250115
  Serious: Yes (Hospitalization)
  Sender: ABBVIE
  Company Number: ZA-ABBOTT-2024A-1388403

PATIENT
  Sex: Male

DRUGS (9)
  1. CREON [Suspect]
     Active Substance: PANCRELIPASE AMYLASE\PANCRELIPASE LIPASE\PANCRELIPASE PROTEASE
     Indication: Pancreatic failure
     Dosage: 300 MG TAKE ONE CAPSULE THREE TIMES A DAY, 25000, EXPIRATION DATE: UNKNOWN
     Route: 048
  2. CHOLESTYRAMINE [Concomitant]
     Active Substance: CHOLESTYRAMINE
     Indication: Blood cholesterol
     Dosage: ONE SACHET DISSOLVED IN WATER TWICE A DAY
     Route: 048
  3. Dulcolax [Concomitant]
     Indication: Product used for unknown indication
     Dosage: 10 MG INSERT ONE PER RECTUM DAILY IF NECESSARY
  4. ECOTRIN [Concomitant]
     Active Substance: ASPIRIN
     Indication: Anticoagulant therapy
     Dosage: 81 MG AS PER PACKAGE INSERT
     Route: 048
  5. BUPRENORPHINE [Concomitant]
     Active Substance: BUPRENORPHINE
     Indication: Dependence
     Dosage: 5 MG APPLY ONE PATCH
     Route: 061
  6. Laxette [Concomitant]
     Indication: Product used for unknown indication
     Dosage: 3.3 G TAKE 30ML TWICE A DAY
     Route: 048
  7. ONDANSETRON HYDROCHLORIDE [Concomitant]
     Active Substance: ONDANSETRON HYDROCHLORIDE
     Indication: Product used for unknown indication
     Dosage: 4 MG ONE UNDER THE TONGUE DAILY IF NECESSARY, RAPITAB
     Route: 048
  8. Gelusil plus [Concomitant]
     Indication: Product used for unknown indication
     Dosage: ONE TABLES POON THREE TIMES A DAY IF NECESSARY
     Route: 048
  9. ESOMEPRAZOLE MAGNESIUM [Concomitant]
     Active Substance: ESOMEPRAZOLE MAGNESIUM
     Indication: Ulcer
     Dosage: 40 MG TAKE ONE TABLET DAILY
     Route: 048

REACTIONS (2)
  - Pancreatic carcinoma [Unknown]
  - Malaise [Unknown]
